FAERS Safety Report 18101057 (Version 5)
Quarter: 2020Q4

REPORT INFORMATION
  Report Type: Spontaneous
  Country: ES (occurrence: ES)
  Receive Date: 20200731
  Receipt Date: 20201015
  Transmission Date: 20210113
  Serious: Yes (Life-Threatening, Hospitalization, Other)
  Sender: FDA-Public Use
  Company Number: ES-AUROBINDO-AUR-APL-2020-037002

PATIENT
  Age: 43 Year
  Sex: Female

DRUGS (2)
  1. DULOXETINE 30 MG [Suspect]
     Active Substance: DULOXETINE
     Indication: PRODUCT USED FOR UNKNOWN INDICATION
     Dosage: 30 MILLIGRAM, ONCE A DAY (30 MILLIGRAM (3 BOXES OF DULOXETINE 30 MG, SINGLE DOSE)
     Route: 065
  2. LORAZEPAM. [Concomitant]
     Active Substance: LORAZEPAM
     Indication: DEPRESSION
     Dosage: UNK
     Route: 065

REACTIONS (17)
  - Delusional perception [Recovered/Resolved]
  - Intentional self-injury [Unknown]
  - Toxicity to various agents [Recovered/Resolved]
  - Serotonin syndrome [Recovering/Resolving]
  - Myoclonus [Recovered/Resolved]
  - Disorientation [Recovered/Resolved]
  - Intentional overdose [Unknown]
  - Gait disturbance [Recovered/Resolved]
  - Tachycardia [Recovered/Resolved]
  - Mydriasis [Recovered/Resolved]
  - Tremor [Recovered/Resolved]
  - Overdose [Recovered/Resolved]
  - Pupillary reflex impaired [Recovered/Resolved]
  - Opsoclonus myoclonus [Recovered/Resolved]
  - Vision blurred [Recovered/Resolved]
  - Hallucination [Recovered/Resolved]
  - Dyskinesia [Recovered/Resolved]
